FAERS Safety Report 5058962-8 (Version None)
Quarter: 2006Q3

REPORT INFORMATION
  Report Type: 
  Country: None (occurrence: None)
  Receive Date: 20060721
  Receipt Date: 20060321
  Transmission Date: 20061208
  Serious: Yes (Hospitalization)
  Sender: FDA-Public Use
  Company Number: US-SANOFI-SYNTHELABO-F01200600828

PATIENT
  Sex: Male
  Weight: 114.5 kg

DRUGS (12)
  1. ASPIRIN [Concomitant]
  2. ALDACTONE [Concomitant]
  3. BENICAR [Concomitant]
  4. PRAVACHOL [Concomitant]
  5. KLOR-CON [Concomitant]
  6. LASIX [Concomitant]
  7. CLONIDINE [Concomitant]
  8. NORVASC [Concomitant]
  9. INSULIN [Concomitant]
  10. MEDICINALPRODUCT NOT SPECIFIED BY SENDER [Concomitant]
  11. GLUCOPHAGE [Concomitant]
  12. CLOPIDOGREL [Suspect]
     Indication: ACUTE CORONARY SYNDROME
     Dosage: UNK
     Route: 048
     Dates: start: 20060221, end: 20060313

REACTIONS (4)
  - BLOOD UREA INCREASED [None]
  - GASTRITIS [None]
  - HAEMATOCRIT DECREASED [None]
  - RECTAL ULCER HAEMORRHAGE [None]
